FAERS Safety Report 7493580-3 (Version None)
Quarter: 2011Q2

REPORT INFORMATION
  Report Type: 
  Country: None (occurrence: None)
  Receive Date: 20110512
  Receipt Date: 20110505
  Transmission Date: 20111010
  Serious: Yes (Other)
  Sender: FDA-Public Use
  Company Number: 2011SP020404

PATIENT
  Age: 75 Year
  Sex: Female

DRUGS (9)
  1. ATORVENT [Concomitant]
  2. VENTOLIN [Concomitant]
  3. SALMETEROL [Concomitant]
  4. SERETIDE DISKUS [Concomitant]
  5. ARICEPT [Suspect]
     Indication: DEMENTIA
     Dosage: 5, 10 MG, QD, PO
     Route: 048
     Dates: start: 20100101
  6. ARICEPT [Suspect]
     Indication: DEMENTIA
     Dosage: 5, 10 MG, QD, PO
     Route: 048
     Dates: start: 20080801, end: 20100101
  7. METOPROLOL TARTRATE [Concomitant]
  8. VIVAL [Concomitant]
  9. REMERON [Suspect]
     Indication: DEPRESSION
     Dosage: 30 MG, QD, PO
     Route: 048
     Dates: start: 20080801

REACTIONS (2)
  - TRISMUS [None]
  - MINI MENTAL STATUS EXAMINATION ABNORMAL [None]
